FAERS Safety Report 15187592 (Version 1)
Quarter: 2018Q3

REPORT INFORMATION
  Report Type: Spontaneous
  Country: IN (occurrence: IN)
  Receive Date: 20180723
  Receipt Date: 20180723
  Transmission Date: 20181010
  Serious: Yes (Death)
  Sender: FDA-Public Use
  Company Number: IN-BAXTER-2018BAX019795

PATIENT
  Age: 26 Year
  Sex: Male
  Weight: 84 kg

DRUGS (1)
  1. SEDOZ [Suspect]
     Active Substance: MIDAZOLAM HYDROCHLORIDE
     Indication: PRODUCT USED FOR UNKNOWN INDICATION
     Dosage: SEDOZ 5 ML
     Route: 065

REACTIONS (1)
  - Death [Fatal]
